FAERS Safety Report 4996714-5 (Version None)
Quarter: 2006Q2

REPORT INFORMATION
  Report Type: 
  Country: None (occurrence: None)
  Receive Date: 20060509
  Receipt Date: 20041011
  Transmission Date: 20061013
  Serious: Yes (Life-Threatening, Hospitalization, Other)
  Sender: FDA-Public Use
  Company Number: DE-MERCK-0410DEU00318

PATIENT
  Age: 69 Year
  Sex: Female
  Weight: 57 kg

DRUGS (12)
  1. VIOXX [Suspect]
     Indication: POLYARTHRITIS
     Route: 048
     Dates: start: 20030101
  2. VIOXX [Suspect]
     Route: 048
     Dates: start: 20040928, end: 20040930
  3. VIOXX [Suspect]
     Route: 048
     Dates: start: 20040406, end: 20040901
  4. VIOXX [Suspect]
     Route: 048
     Dates: start: 20000401
  5. VIOXX [Suspect]
     Indication: PAIN
     Route: 048
     Dates: start: 20030101
  6. VIOXX [Suspect]
     Route: 048
     Dates: start: 20040928, end: 20040930
  7. VIOXX [Suspect]
     Route: 048
     Dates: start: 20040406, end: 20040901
  8. VIOXX [Suspect]
     Route: 048
     Dates: start: 20000401
  9. LEFLUNOMIDE [Concomitant]
     Route: 048
  10. METHYLPREDNISOLONE [Concomitant]
     Indication: POLYARTHRITIS
     Route: 048
  11. OXYBUTYNIN [Concomitant]
     Route: 048
  12. ENOXAPARIN SODIUM [Concomitant]
     Indication: THROMBOSIS PROPHYLAXIS
     Route: 051

REACTIONS (30)
  - ANAEMIA [None]
  - ARTHROPATHY [None]
  - BRONCHITIS ACUTE [None]
  - BRONCHOPNEUMONIA [None]
  - CARDIAC FAILURE [None]
  - CARDIOVASCULAR INSUFFICIENCY [None]
  - CEREBRAL INFARCTION [None]
  - CEREBROVASCULAR ACCIDENT [None]
  - CEREBROVASCULAR DISORDER [None]
  - CORONARY ARTERY DISEASE [None]
  - ESCHERICHIA SEPSIS [None]
  - FAECAL INCONTINENCE [None]
  - FEMUR FRACTURE [None]
  - GASTROENTERITIS [None]
  - HYPERTENSION [None]
  - HYPOCHROMIC ANAEMIA [None]
  - HYPOTHYROIDISM [None]
  - IMMOBILE [None]
  - IMPAIRED HEALING [None]
  - LEUKOENCEPHALOPATHY [None]
  - LIGAMENT RUPTURE [None]
  - MYOCARDIAL INFARCTION [None]
  - PLEURAL EFFUSION [None]
  - POST PROCEDURAL COMPLICATION [None]
  - PULMONARY EMBOLISM [None]
  - SEPSIS [None]
  - SOMNOLENCE [None]
  - STAPHYLOCOCCAL SEPSIS [None]
  - URINARY INCONTINENCE [None]
  - VENOUS THROMBOSIS LIMB [None]
